FAERS Safety Report 14392888 (Version 1)
Quarter: 2018Q1

REPORT INFORMATION
  Report Type: Spontaneous
  Country: US (occurrence: US)
  Receive Date: 20180113
  Receipt Date: 20180113
  Transmission Date: 20180509
  Serious: Yes (Other)
  Sender: FDA-Public Use
  Company Number: None

PATIENT
  Age: 68 Year
  Sex: Male
  Weight: 87.75 kg

DRUGS (9)
  1. ROPINEROLE HCL .25MG [Suspect]
     Active Substance: ROPINIROLE HYDROCHLORIDE
     Indication: RESTLESS LEGS SYNDROME
     Dosage: ?          QUANTITY:1 TABLET(S);?
     Route: 048
     Dates: start: 20080101, end: 20180104
  2. TAMULOSIN [Concomitant]
     Active Substance: TAMSULOSIN
  3. CALCIUM [Concomitant]
     Active Substance: CALCIUM
  4. EZOPICLONE [Concomitant]
     Active Substance: ESZOPICLONE
  5. LEVOTHYROXIN [Concomitant]
     Active Substance: LEVOTHYROXINE
  6. TRAMADOL. [Concomitant]
     Active Substance: TRAMADOL
  7. LOVASTATIN. [Concomitant]
     Active Substance: LOVASTATIN
  8. GLUCOSOMINE CHONDROITIN [Concomitant]
  9. GENERIC MULTI-VITAMIN [Concomitant]

REACTIONS (7)
  - Tremor [None]
  - Muscle strain [None]
  - Seizure [None]
  - Pain [None]
  - Dizziness [None]
  - Vertigo [None]
  - Confusional state [None]

NARRATIVE: CASE EVENT DATE: 20180104
